FAERS Safety Report 9063199 (Version 1)
Quarter: 2013Q1

REPORT INFORMATION
  Report Type: Spontaneous
  Country: US (occurrence: US)
  Receive Date: 20130213
  Receipt Date: 20130213
  Transmission Date: 20140127
  Serious: Yes (Other)
  Sender: FDA-Public Use
  Company Number: US-GLAXOSMITHKLINE-A0874405A

PATIENT
  Age: 56 Year
  Sex: Female

DRUGS (1)
  1. AVANDIA [Suspect]
     Indication: DIABETES MELLITUS
     Dosage: 4MG TWICE PER DAY
     Route: 048
     Dates: start: 200506, end: 200807

REACTIONS (6)
  - Cardiac failure congestive [Not Recovered/Not Resolved]
  - Hypertension [Unknown]
  - Diastolic dysfunction [Unknown]
  - Dyslipidaemia [Unknown]
  - Aortic stenosis [Unknown]
  - Sleep disorder [Unknown]
